FAERS Safety Report 5832300-2 (Version None)
Quarter: 2008Q3

REPORT INFORMATION
  Report Type: 
  Country: None (occurrence: None)
  Receive Date: 20080804
  Receipt Date: 20080725
  Transmission Date: 20090109
  Serious: Yes (Hospitalization)
  Sender: FDA-Public Use
  Company Number: A0740776A

PATIENT
  Sex: Female

DRUGS (7)
  1. LAMICTAL [Suspect]
     Indication: AFFECTIVE DISORDER
     Dosage: 100MG TWICE PER DAY
     Route: 048
     Dates: start: 20040101
  2. AUGMENTIN '125' [Suspect]
     Dosage: 875MG TWICE PER DAY
     Route: 048
     Dates: start: 20080601, end: 20080705
  3. ADVAIR DISKUS 100/50 [Suspect]
     Indication: ASTHMA
     Dosage: 1PUFF TWICE PER DAY
     Route: 055
     Dates: start: 20080301
  4. SINGULAIR [Concomitant]
  5. LEVOTHYROXINE SODIUM [Concomitant]
  6. CYMBALTA [Concomitant]
  7. CORTISONE [Concomitant]

REACTIONS (15)
  - ABDOMINAL DISTENSION [None]
  - ARTHRALGIA [None]
  - BRONCHITIS [None]
  - CHEILITIS [None]
  - DIARRHOEA [None]
  - FLATULENCE [None]
  - HEPATIC ENZYME INCREASED [None]
  - INSOMNIA [None]
  - JOINT SWELLING [None]
  - MUSCULAR WEAKNESS [None]
  - NAUSEA [None]
  - RASH [None]
  - SOMNOLENCE [None]
  - SYSTEMIC LUPUS ERYTHEMATOSUS [None]
  - WEIGHT INCREASED [None]
